FAERS Safety Report 21961345 (Version 1)
Quarter: 2023Q1

REPORT INFORMATION
  Report Type: Other
  Country: None (occurrence: CA)
  Receive Date: 20230207
  Receipt Date: 20230207
  Transmission Date: 20230417
  Serious: Yes (Other)
  Sender: FDA-Public Use
  Company Number: CA-Spectra Medical Devices, LLC-2137591

PATIENT
  Age: 62 Year
  Sex: Male

DRUGS (1)
  1. LIDOCAINE HYDROCHLORIDE ANHYDROUS [Suspect]
     Active Substance: LIDOCAINE HYDROCHLORIDE ANHYDROUS
     Indication: Anaesthesia
     Route: 056

REACTIONS (6)
  - Retinal artery occlusion [Unknown]
  - Retinal vein occlusion [Unknown]
  - Retinal haemorrhage [Recovered/Resolved]
  - Macular oedema [Unknown]
  - Arteriovenous fistula [Unknown]
  - Incorrect route of product administration [Unknown]
